FAERS Safety Report 23104901 (Version 8)
Quarter: 2024Q3

REPORT INFORMATION
  Report Type: Report from Study
  Country: EG (occurrence: EG)
  Receive Date: 20231025
  Receipt Date: 20240910
  Transmission Date: 20241016
  Serious: Yes (Life-Threatening, Disabling, Other)
  Sender: NOVARTIS
  Company Number: EG-002147023-NVSC2023EG225707

PATIENT
  Age: 37 Year
  Sex: Male
  Weight: 67 kg

DRUGS (12)
  1. GILENYA [Suspect]
     Active Substance: FINGOLIMOD HYDROCHLORIDE
     Indication: Multiple sclerosis
     Dosage: 1 DOSAGE FORM, QD
     Route: 048
     Dates: start: 20160124, end: 202001
  2. GILENYA [Suspect]
     Active Substance: FINGOLIMOD HYDROCHLORIDE
     Dosage: 1 DOSAGE FORM, QOD (PER DAY AT FIRST THEN HIS HCP SHIFTED HIM TO ONE CAPSULE EVERY OTHER DAY)
     Route: 048
  3. GILENYA [Suspect]
     Active Substance: FINGOLIMOD HYDROCHLORIDE
     Dosage: 1 DOSAGE FORM
     Route: 048
  4. MAYZENT [Suspect]
     Active Substance: SIPONIMOD
     Indication: Multiple sclerosis
     Dosage: 1 DOSAGE FORM, QD
     Route: 048
     Dates: start: 20240306, end: 20240728
  5. MAYZENT [Suspect]
     Active Substance: SIPONIMOD
     Dosage: 1 DOSAGE FORM (WITHOUT LOADING DOSE)
     Route: 048
     Dates: start: 2024, end: 20240808
  6. MAYZENT [Suspect]
     Active Substance: SIPONIMOD
     Dosage: 1 DOSAGE FORM
     Route: 048
     Dates: end: 20240819
  7. OMEGA 3 [Concomitant]
     Active Substance: CAPSAICIN
     Indication: Vitamin supplementation
     Dosage: 1 DOSAGE FORM, QD, (INITIATED WITH GILENYA AND STOPPED)
     Route: 065
     Dates: start: 20160124
  8. OMEGA 3 [Concomitant]
     Active Substance: CAPSAICIN
     Indication: Disturbance in attention
     Dosage: 1 DOSAGE FORM, QD, (INITIATED WITH GILENYA AND STOPPED)
     Route: 065
     Dates: start: 20230124
  9. OMEGA 3 [Concomitant]
     Active Substance: CAPSAICIN
     Indication: Memory impairment
  10. CIPRALEX [Concomitant]
     Active Substance: ESCITALOPRAM OXALATE
     Indication: Depression
     Dosage: 1 DOSAGE FORM, QD, (BEFORE SLEEP) (INITIATED WITH GILENYA AND STOPPED)
     Route: 065
     Dates: start: 20160124
  11. ZINC [Concomitant]
     Active Substance: ZINC
     Indication: Supplementation therapy
     Dosage: 1 DOSAGE FORM, AFTER BREAKFAST, (STOPPED BECAUSE HIS COLON WAS INFLAMMED)
     Route: 065
     Dates: start: 202310
  12. SOLU-MEDROL [Concomitant]
     Active Substance: METHYLPREDNISOLONE SODIUM SUCCINATE
     Indication: Hypersensitivity
     Dosage: 1 G, INFUSED FOR 4 HOURS AT ATTACKS ONLY FOR 3 DAYS
     Route: 065
     Dates: start: 2018

REACTIONS (25)
  - Anaemia [Recovered/Resolved]
  - White blood cell count decreased [Recovered/Resolved]
  - Multiple sclerosis relapse [Recovered/Resolved]
  - Gait disturbance [Recovering/Resolving]
  - Multiple sclerosis relapse [Recovered/Resolved]
  - Multiple sclerosis relapse [Recovered/Resolved]
  - Multiple sclerosis relapse [Recovered/Resolved]
  - Multiple sclerosis relapse [Recovered/Resolved]
  - Multiple sclerosis relapse [Recovered/Resolved]
  - Multiple sclerosis relapse [Recovered/Resolved]
  - Multiple sclerosis relapse [Recovered/Resolved]
  - Multiple sclerosis relapse [Recovered/Resolved]
  - Multiple sclerosis relapse [Recovered/Resolved]
  - Multiple sclerosis relapse [Recovering/Resolving]
  - Urinary incontinence [Recovered/Resolved]
  - Dehydration [Unknown]
  - Mental disorder [Unknown]
  - Balance disorder [Not Recovered/Not Resolved]
  - Movement disorder [Not Recovered/Not Resolved]
  - Drug intolerance [Recovering/Resolving]
  - Cardiac disorder [Recovering/Resolving]
  - Incorrect dose administered [Recovering/Resolving]
  - Drug ineffective [Not Recovered/Not Resolved]
  - Fatigue [Unknown]
  - Off label use [Unknown]

NARRATIVE: CASE EVENT DATE: 20240306
